FAERS Safety Report 16441032 (Version 1)
Quarter: 2019Q2

REPORT INFORMATION
  Report Type: Report from Study
  Country: GB (occurrence: GB)
  Receive Date: 20190617
  Receipt Date: 20190617
  Transmission Date: 20190711
  Serious: Yes (Hospitalization)
  Sender: FDA-Public Use
  Company Number: GB-PFIZER INC-2019248564

PATIENT

DRUGS (1)
  1. SOMATROPIN. [Suspect]
     Active Substance: SOMATROPIN
     Indication: TURNER^S SYNDROME
     Dosage: 0.7 MG, 1X/DAY
     Route: 058
     Dates: start: 20190417

REACTIONS (6)
  - Diarrhoea [Not Recovered/Not Resolved]
  - Blood ketone body increased [Not Recovered/Not Resolved]
  - Abdominal pain upper [Unknown]
  - Starvation ketoacidosis [Unknown]
  - Vomiting [Recovered/Resolved]
  - Product dose omission [Unknown]

NARRATIVE: CASE EVENT DATE: 20190516
